FAERS Safety Report 19906672 (Version 1)
Quarter: 2021Q4

REPORT INFORMATION
  Report Type: Spontaneous
  Country: US (occurrence: US)
  Receive Date: 20211001
  Receipt Date: 20211001
  Transmission Date: 20220303
  Serious: Yes (Hospitalization)
  Sender: FDA-Public Use
  Company Number: None

PATIENT
  Age: 77 Year
  Sex: Female

DRUGS (1)
  1. COSENTYX [Suspect]
     Active Substance: SECUKINUMAB
     Indication: Psoriatic arthropathy
     Dosage: ?          OTHER FREQUENCY:Q 4 WKS;
     Route: 058
     Dates: start: 20210115

REACTIONS (2)
  - Cervical vertebral fracture [None]
  - Therapy interrupted [None]

NARRATIVE: CASE EVENT DATE: 20210929
